FAERS Safety Report 17837109 (Version 1)
Quarter: 2020Q2

REPORT INFORMATION
  Report Type: Report from Study
  Country: US (occurrence: US)
  Receive Date: 20200529
  Receipt Date: 20200529
  Transmission Date: 20200714
  Serious: Yes (Other)
  Sender: FDA-Public Use
  Company Number: US-ROCHE-2606869

PATIENT
  Sex: Female

DRUGS (3)
  1. OCREVUS [Suspect]
     Active Substance: OCRELIZUMAB
     Route: 042
     Dates: start: 20191122
  2. OCREVUS [Suspect]
     Active Substance: OCRELIZUMAB
     Indication: MULTIPLE SCLEROSIS
     Dosage: INFUSE 300MG INTRAVENOUSLY ON DAY(S) 1 AND DAY(S)
     Route: 042
     Dates: start: 20190411
  3. OCREVUS [Suspect]
     Active Substance: OCRELIZUMAB
     Dosage: INFUSE 300MG INTRAVENOUSLY ON DAY(S) 1 AND DAY(S)
     Route: 042
     Dates: start: 20190419

REACTIONS (1)
  - Blindness unilateral [Unknown]
